FAERS Safety Report 21418963 (Version 2)
Quarter: 2022Q4

REPORT INFORMATION
  Report Type: Report from Study
  Country: US (occurrence: US)
  Receive Date: 20221006
  Receipt Date: 20221103
  Transmission Date: 20230113
  Serious: Yes (Hospitalization, Other)
  Sender: FDA-Public Use
  Company Number: US-GW PHARMA-2022-US-028994

PATIENT
  Age: 16 Year
  Sex: Male

DRUGS (4)
  1. EPIDIOLEX [Suspect]
     Active Substance: CANNABIDIOL
     Indication: Lennox-Gastaut syndrome
     Dosage: 4 MILLILITER, BID
     Route: 048
     Dates: start: 20220621
  2. EPIDIOLEX [Suspect]
     Active Substance: CANNABIDIOL
     Indication: Status epilepticus
     Dosage: 8 MILLILITER
     Route: 048
     Dates: start: 202206
  3. EPIDIOLEX [Suspect]
     Active Substance: CANNABIDIOL
     Indication: Mucopolysaccharidosis II
  4. ELAPRASE [Concomitant]
     Active Substance: IDURSULFASE
     Indication: Product used for unknown indication

REACTIONS (4)
  - Central venous catheter removal [Unknown]
  - Acute respiratory distress syndrome [Unknown]
  - Pneumonia [Unknown]
  - Off label use [Unknown]

NARRATIVE: CASE EVENT DATE: 20220920
